FAERS Safety Report 8836119 (Version 1)
Quarter: 2012Q4

REPORT INFORMATION
  Report Type: 
  Country: DE (occurrence: DE)
  Receive Date: 20121011
  Receipt Date: 20121011
  Transmission Date: 20130627
  Serious: Yes (Death)
  Sender: FDA-Public Use
  Company Number: DE-ABBOTT-12P-062-0973102-00

PATIENT
  Sex: Male
  Weight: 2.7 kg

DRUGS (1)
  1. BLOPRESS [Suspect]
     Indication: MATERNAL EXPOSURE TIMING UNSPECIFIED
     Route: 064

REACTIONS (2)
  - Umbilical cord abnormality [Fatal]
  - Foetal exposure during pregnancy [Unknown]
